FAERS Safety Report 4804435-4 (Version None)
Quarter: 2005Q4

REPORT INFORMATION
  Report Type: 
  Country: None (occurrence: None)
  Receive Date: 20051020
  Receipt Date: 20051010
  Transmission Date: 20060501
  Serious: Yes (Death)
  Sender: FDA-Public Use
  Company Number: NL-GLAXOSMITHKLINE-B0396820A

PATIENT
  Age: 43 Year
  Sex: Male

DRUGS (1)
  1. BUPROPION HYDROCHLORIDE [Suspect]

REACTIONS (13)
  - APNOEA [None]
  - BRONCHOSPASM [None]
  - CARDIAC ARREST [None]
  - CONVULSION [None]
  - DYSKINESIA [None]
  - HYPERTONIA [None]
  - INTENTIONAL DRUG MISUSE [None]
  - LARYNGEAL OEDEMA [None]
  - NAUSEA [None]
  - OVERDOSE [None]
  - POISONING [None]
  - PULMONARY OEDEMA [None]
  - VOMITING [None]
